FAERS Safety Report 10319346 (Version 2)
Quarter: 2015Q1

REPORT INFORMATION
  Report Type: Other
  Country: US (occurrence: US)
  Receive Date: 20140719
  Receipt Date: 20150323
  Transmission Date: 20150720
  Serious: Yes (Hospitalization, Other)
  Sender: FDA-Public Use
  Company Number: US-GSKPPD-2014GSK009514

PATIENT
  Age: 63 Year
  Sex: Male
  Weight: 110.32 kg

DRUGS (4)
  1. BAYCOL [Concomitant]
     Active Substance: CERIVASTATIN SODIUM
     Dosage: 2/10TH MG
  2. AVANDIA [Suspect]
     Active Substance: ROSIGLITAZONE MALEATE
     Indication: DIABETES MELLITUS
     Route: 048
  3. AMIODARONE [Concomitant]
     Active Substance: AMIODARONE
  4. COUMADIN [Concomitant]
     Active Substance: WARFARIN SODIUM

REACTIONS (1)
  - Cardiac failure congestive [Recovered/Resolved]

NARRATIVE: CASE EVENT DATE: 20001129
